FAERS Safety Report 7902069-6 (Version None)
Quarter: 2011Q4

REPORT INFORMATION
  Report Type: 
  Country: None (occurrence: None)
  Receive Date: 20111108
  Receipt Date: 20111025
  Transmission Date: 20120403
  Serious: Yes (Hospitalization, Other)
  Sender: FDA-Public Use
  Company Number: US-JNJFOC-20111011759

PATIENT
  Sex: Female

DRUGS (32)
  1. POTASSIUM CHLORIDE [Concomitant]
     Route: 048
  2. PHENOXYBENZAMINE [Concomitant]
     Dosage: UNTIL AFTER SURGERY
     Route: 048
  3. SERTRALINE HYDROCHLORIDE [Concomitant]
     Route: 048
  4. FENTANYL-100 [Suspect]
     Route: 062
  5. FLUTICASONE PROPIONATE/SALMETEROL [Concomitant]
     Dosage: 500/50 MCG INHALE 1 PUFF
  6. POTASSIUM CHLORIDE [Concomitant]
     Route: 048
  7. METOPROLOL [Concomitant]
  8. DIGOXIN [Concomitant]
  9. LEVOTHYROXINE SODIUM [Concomitant]
     Route: 048
  10. HALOPERIDOL [Concomitant]
     Route: 048
  11. DICYCLOMINE [Suspect]
     Indication: PRODUCT USED FOR UNKNOWN INDICATION
     Route: 048
  12. SERTRALINE HYDROCHLORIDE [Concomitant]
     Route: 048
  13. ESOMEPRAZOLE [Concomitant]
     Route: 048
  14. MEMANTINE [Concomitant]
     Route: 048
  15. FENTANYL-100 [Suspect]
     Route: 062
  16. FENTANYL-100 [Suspect]
     Route: 062
     Dates: start: 20100101
  17. TERIPARATIDE [Concomitant]
     Dosage: 750 MCG/3 ML
  18. MEMANTINE [Concomitant]
     Route: 048
  19. METOLAZONE [Concomitant]
     Dosage: 5 MG 0.5 TABLET BY MOUTH AS NEEDED
     Route: 048
  20. VITAMIN D [Concomitant]
  21. HALOPERIDOL [Concomitant]
     Route: 048
  22. TERIPARATIDE [Concomitant]
     Dosage: 750 MCG/3 ML
  23. ASPIRIN [Concomitant]
     Route: 048
  24. DIGOXIN [Concomitant]
  25. VITAMIN D [Concomitant]
  26. HALOPERIDOL [Concomitant]
     Route: 048
  27. FENTANYL-100 [Suspect]
     Indication: PRODUCT USED FOR UNKNOWN INDICATION
     Route: 062
  28. ROSUVASTATIN [Concomitant]
     Route: 048
  29. PSYLLIUM [Concomitant]
     Dosage: 1 PACKET
  30. METOPROLOL [Concomitant]
  31. SUCRALFATE [Concomitant]
  32. VITAMIN D [Concomitant]

REACTIONS (2)
  - OVERDOSE [None]
  - DELIRIUM [None]
